FAERS Safety Report 4496926-3 (Version None)
Quarter: 2004Q4

REPORT INFORMATION
  Report Type: 
  Country: None (occurrence: None)
  Receive Date: 20041109
  Receipt Date: 20041007
  Transmission Date: 20050328
  Serious: Yes (Hospitalization)
  Sender: FDA-Public Use
  Company Number: DE-MERCK-0410DEU00209

PATIENT
  Age: 77 Year
  Sex: Female
  Weight: 70 kg

DRUGS (10)
  1. VIOXX [Suspect]
     Indication: BACK PAIN
     Route: 048
     Dates: start: 20040801, end: 20040807
  2. TRAMADOL HYDROCHLORIDE [Concomitant]
     Indication: BACK PAIN
     Route: 048
     Dates: end: 20040101
  3. DIPYRONE [Concomitant]
     Indication: BACK PAIN
     Route: 048
     Dates: end: 20040101
  4. ATENOLOL AND CHLORTHALIDONE [Concomitant]
     Route: 048
     Dates: start: 19940101
  5. HYDROCHLOROTHIAZIDE AND RAMIPRIL [Concomitant]
     Route: 065
  6. AMITRIPTYLINE HYDROCHLORIDE [Concomitant]
     Route: 065
  7. METOPROLOL [Concomitant]
     Route: 065
  8. ASPIRIN AND DIPYRIDAMOLE [Concomitant]
     Route: 065
  9. TETRAZEPAM [Concomitant]
     Route: 065
     Dates: start: 20040801
  10. DEXAMETHASONE SODIUM PHOSPHATE [Concomitant]
     Route: 065
     Dates: start: 20040801, end: 20040801

REACTIONS (1)
  - ISCHAEMIC STROKE [None]
